FAERS Safety Report 9390445 (Version 1)
Quarter: 2013Q2

REPORT INFORMATION
  Report Type: Spontaneous
  Country: US (occurrence: None)
  Receive Date: 20130624
  Receipt Date: 20130624
  Transmission Date: 20140414
  Serious: Yes (Other)
  Sender: FDA-Public Use
  Company Number: 2013036516

PATIENT
  Age: 40 Year
  Sex: Female

DRUGS (1)
  1. CARIMUNE (IMMUNE GLOBULIN INTRAVENOUS (HUMAN) [Suspect]
     Indication: RENAL TRANSPLANT
     Dosage: 280 G TOTAL, OVER 8 HOURS; 2.5 M/L\KG/HR INTRAVENOUS (NOT OTHERWISE SPECIFIED)
     Route: 042

REACTIONS (3)
  - Off label use [None]
  - Toxicity to various agents [None]
  - Renal failure acute [None]
